FAERS Safety Report 12913759 (Version 4)
Quarter: 2016Q4

REPORT INFORMATION
  Report Type: Spontaneous
  Country: CN (occurrence: CN)
  Receive Date: 20161106
  Receipt Date: 20161209
  Transmission Date: 20170207
  Serious: Yes (Death, Life-Threatening, Hospitalization, Other)
  Sender: FDA-Public Use
  Company Number: CN-ASTRAZENECA-2016SF14290

PATIENT
  Age: 55 Year
  Sex: Male

DRUGS (5)
  1. CRESTOR [Interacting]
     Active Substance: ROSUVASTATIN CALCIUM
     Indication: HYPERLIPIDAEMIA
     Route: 048
  2. OTHER STATIN DRUGS [Concomitant]
  3. UNSPECIFIED [Interacting]
     Active Substance: UNSPECIFIED INGREDIENT
     Route: 065
  4. ANTIBIOTIC [Concomitant]
     Active Substance: UNSPECIFIED INGREDIENT
  5. CRESTOR [Suspect]
     Active Substance: ROSUVASTATIN CALCIUM
     Indication: HYPERLIPIDAEMIA
     Route: 048

REACTIONS (7)
  - Cardiac failure [Fatal]
  - Product use issue [Unknown]
  - Condition aggravated [Fatal]
  - Rhabdomyolysis [Recovered/Resolved]
  - Drug interaction [Unknown]
  - Respiratory arrest [Unknown]
  - Restlessness [Unknown]

NARRATIVE: CASE EVENT DATE: 20161027
